FAERS Safety Report 7834375-8 (Version None)
Quarter: 2011Q4

REPORT INFORMATION
  Report Type: 
  Country: None (occurrence: None)
  Receive Date: 20111024
  Receipt Date: 20111018
  Transmission Date: 20120403
  Serious: Yes (Death, Other)
  Sender: FDA-Public Use
  Company Number: PHHY2011JP73021

PATIENT
  Sex: Female
  Weight: 39 kg

DRUGS (3)
  1. DIGOXIN [Concomitant]
     Indication: CARDIAC FAILURE
     Dosage: 0.125 MG, UNK
     Route: 048
     Dates: start: 20080602, end: 20110714
  2. AMLODIPINE BESYLATE/VALSARTAN [Suspect]
     Indication: HYPERTENSION
     Dosage: 1 DF DAILY
     Route: 048
     Dates: start: 20100617, end: 20110714
  3. LASIX [Concomitant]
     Indication: CARDIAC FAILURE
     Dosage: 20 MG, UNK
     Route: 048
     Dates: start: 20080602, end: 20110714

REACTIONS (2)
  - CARDIAC FAILURE [None]
  - BLOOD PRESSURE DIASTOLIC DECREASED [None]
